FAERS Safety Report 23192271 (Version 1)
Quarter: 2023Q4

REPORT INFORMATION
  Report Type: Spontaneous
  Country: NL (occurrence: NL)
  Receive Date: 20231116
  Receipt Date: 20231116
  Transmission Date: 20240109
  Serious: Yes (Hospitalization)
  Sender: FDA-Public Use
  Company Number: None

PATIENT
  Age: 90 Year
  Sex: Female
  Weight: 77.8 kg

DRUGS (2)
  1. VALACYCLOVIR HYDROCHLORIDE [Suspect]
     Active Substance: VALACYCLOVIR HYDROCHLORIDE
     Indication: Herpes zoster
     Dosage: 3X PER DAY 2 PIECES
     Route: 065
     Dates: start: 20231002, end: 20231005
  2. DIGOXIN [Concomitant]
     Active Substance: DIGOXIN
     Dosage: TABLET, 0,0625 MG (MILLIGRAM)
     Route: 065

REACTIONS (2)
  - Diplopia [Unknown]
  - Dizziness [Unknown]
